FAERS Safety Report 15044020 (Version 1)
Quarter: 2018Q2

REPORT INFORMATION
  Report Type: Spontaneous
  Country: US (occurrence: US)
  Receive Date: 20180531
  Receipt Date: 20180531
  Transmission Date: 20180711
  Serious: No
  Sender: FDA-Public Use
  Company Number: None

PATIENT
  Age: 63 Year
  Sex: Female
  Weight: 54.7 kg

DRUGS (1)
  1. PACLITAXEL, 6 MG/ML [Suspect]
     Active Substance: PACLITAXEL
     Indication: NON-SMALL CELL LUNG CANCER
     Route: 041

REACTIONS (8)
  - Hypertension [None]
  - Dizziness [None]
  - Tachycardia [None]
  - Headache [None]
  - Dyspnoea [None]
  - Feeling hot [None]
  - Infusion related reaction [None]
  - Erythema [None]

NARRATIVE: CASE EVENT DATE: 20180523
